FAERS Safety Report 7538910-9 (Version None)
Quarter: 2011Q2

REPORT INFORMATION
  Report Type: 
  Country: None (occurrence: None)
  Receive Date: 20110610
  Receipt Date: 20110601
  Transmission Date: 20111010
  Serious: Yes (Other)
  Sender: FDA-Public Use
  Company Number: US-JNJFOC-20110102705

PATIENT
  Sex: Male
  Weight: 64.86 kg

DRUGS (15)
  1. FENTANYL-100 [Suspect]
     Route: 062
  2. FENTANYL-100 [Suspect]
     Route: 062
  3. FENTANYL-100 [Suspect]
     Route: 062
  4. FENTANYL-100 [Suspect]
     Dosage: NDC#: 0781-7242-55
     Route: 062
     Dates: start: 20100101
  5. FENTANYL-100 [Suspect]
     Route: 062
     Dates: start: 20110101
  6. FENTANYL-100 [Suspect]
     Route: 062
     Dates: start: 20110101
  7. FENTANYL-100 [Suspect]
     Dosage: NDC#: 0781-7242-55
     Route: 062
     Dates: start: 20100101
  8. FENTANYL-100 [Suspect]
     Indication: BACK PAIN
     Route: 062
  9. FENTANYL-100 [Suspect]
     Route: 062
     Dates: end: 20110101
  10. FENTANYL-100 [Suspect]
     Route: 062
     Dates: end: 20110101
  11. FENTANYL-100 [Suspect]
     Indication: BACK PAIN
     Dosage: NDC#: 0781-7241-55
     Route: 062
  12. FENTANYL-100 [Suspect]
     Indication: ARTHRALGIA
     Dosage: NDC#: 0781-7241-55
     Route: 062
  13. TRAMADOL HCL [Concomitant]
     Indication: BREAKTHROUGH PAIN
     Route: 048
  14. FENTANYL-100 [Suspect]
     Indication: ARTHRALGIA
     Route: 062
     Dates: start: 20090101, end: 20100101
  15. FENTANYL-100 [Suspect]
     Route: 062
     Dates: start: 20090101, end: 20100101

REACTIONS (13)
  - SEPSIS [None]
  - OSTEOARTHRITIS [None]
  - HYPOTENSION [None]
  - WEIGHT INCREASED [None]
  - MUSCLE TWITCHING [None]
  - WITHDRAWAL SYNDROME [None]
  - FEELING ABNORMAL [None]
  - CONSTIPATION [None]
  - VOMITING [None]
  - INSOMNIA [None]
  - RENAL FAILURE ACUTE [None]
  - ABNORMAL BEHAVIOUR [None]
  - ADVERSE EVENT [None]
